FAERS Safety Report 13840613 (Version 2)
Quarter: 2017Q3

REPORT INFORMATION
  Report Type: Report from Study
  Country: US (occurrence: US)
  Receive Date: 20170807
  Receipt Date: 20170810
  Transmission Date: 20171127
  Serious: Yes (Hospitalization)
  Sender: FDA-Public Use
  Company Number: US-VIFOR (INTERNATIONAL) INC.-VIT-2017-08138

PATIENT
  Sex: Female
  Weight: 32.69 kg

DRUGS (1)
  1. VELTASSA [Suspect]
     Active Substance: PATIROMER
     Indication: HYPERKALAEMIA
     Route: 048
     Dates: start: 20170627

REACTIONS (3)
  - Chronic kidney disease [Recovering/Resolving]
  - Drug dose omission [Unknown]
  - Gout [Recovering/Resolving]

NARRATIVE: CASE EVENT DATE: 2017
